FAERS Safety Report 4677091-6 (Version None)
Quarter: 2005Q2

REPORT INFORMATION
  Report Type: 
  Country: None (occurrence: None)
  Receive Date: 20050525
  Receipt Date: 20050525
  Transmission Date: 20051028
  Serious: Yes (Other)
  Sender: FDA-Public Use
  Company Number: None

PATIENT
  Age: 78 Year
  Sex: Male
  Weight: 67.6 kg

DRUGS (2)
  1. METOPROLOL [Suspect]
  2. FOSINOPRIL TAB [Suspect]
     Dosage: 5MGPO
     Route: 048
     Dates: start: 20050117, end: 20050119

REACTIONS (1)
  - HYPOTENSION [None]
